FAERS Safety Report 5224081-0 (Version None)
Quarter: 2007Q1

REPORT INFORMATION
  Report Type: 
  Country: None (occurrence: None)
  Receive Date: 20070130
  Receipt Date: 20070124
  Transmission Date: 20070707
  Serious: Yes (Hospitalization)
  Sender: FDA-Public Use
  Company Number: FR-BRISTOL-MYERS SQUIBB COMPANY-13615463

PATIENT
  Age: 92 Year
  Sex: Female
  Weight: 35 kg

DRUGS (7)
  1. APROVEL TABS 300 MG [Suspect]
     Indication: HYPERTENSION
     Route: 048
     Dates: end: 20061031
  2. TRANXENE [Concomitant]
     Dates: end: 20061103
  3. DAFLON [Concomitant]
     Dates: end: 20061031
  4. PRAXILENE [Concomitant]
     Dates: end: 20061031
  5. VASTAREL [Concomitant]
     Dates: end: 20061031
  6. FORLAX [Concomitant]
  7. TEMESTA [Concomitant]

REACTIONS (3)
  - CONFUSIONAL STATE [None]
  - FALL [None]
  - HYPONATRAEMIA [None]
